FAERS Safety Report 7462509-6 (Version None)
Quarter: 2011Q2

REPORT INFORMATION
  Report Type: 
  Country: None (occurrence: None)
  Receive Date: 20110506
  Receipt Date: 20100928
  Transmission Date: 20111010
  Serious: No
  Sender: FDA-Public Use
  Company Number: US-BAYER-201035262NA

PATIENT
  Age: 79 Year
  Sex: Female

DRUGS (4)
  1. CHEMOTHERAPEUTICS NOS [Concomitant]
  2. VITAMINS [Concomitant]
  3. METOPROLOL [Concomitant]
  4. LEUKINE [Suspect]
     Indication: COLONY STIMULATING FACTOR PROPHYLAXIS
     Dosage: UNK
     Dates: start: 20100901, end: 20100901

REACTIONS (6)
  - NAUSEA [None]
  - MALAISE [None]
  - OEDEMA PERIPHERAL [None]
  - HEADACHE [None]
  - FATIGUE [None]
  - PAIN IN EXTREMITY [None]
